FAERS Safety Report 20076888 (Version 1)
Quarter: 2021Q4

REPORT INFORMATION
  Report Type: Spontaneous
  Country: US (occurrence: US)
  Receive Date: 20211116
  Receipt Date: 20211116
  Transmission Date: 20220303
  Serious: No
  Sender: FDA-Public Use
  Company Number: US-PFIZER INC-202101400080

PATIENT
  Age: 61 Year
  Sex: Female

DRUGS (3)
  1. ESTRING [Suspect]
     Active Substance: ESTRADIOL
     Indication: Atrophic vulvovaginitis
     Dosage: 2 MG, EVERY 3 MONTHS (EVERY 90 DAYS)
     Route: 067
     Dates: start: 20211018
  2. ESTRING [Suspect]
     Active Substance: ESTRADIOL
     Indication: Vulvovaginal dryness
  3. ESTRING [Suspect]
     Active Substance: ESTRADIOL
     Indication: Menopause

REACTIONS (2)
  - Discomfort [Unknown]
  - Device difficult to use [Unknown]
